FAERS Safety Report 7295065-6 (Version None)
Quarter: 2011Q1

REPORT INFORMATION
  Report Type: 
  Country: None (occurrence: None)
  Receive Date: 20110216
  Receipt Date: 20110208
  Transmission Date: 20110831
  Serious: Yes (Other)
  Sender: FDA-Public Use
  Company Number: LY-JNJFOC-20110202510

PATIENT
  Age: 32 Year
  Sex: Female

DRUGS (1)
  1. REMICADE [Suspect]
     Indication: AUTOIMMUNE DISORDER
     Route: 042

REACTIONS (1)
  - WEIGHT INCREASED [None]
